FAERS Safety Report 7359362-8 (Version None)
Quarter: 2011Q1

REPORT INFORMATION
  Report Type: 
  Country: None (occurrence: None)
  Receive Date: 20110317
  Receipt Date: 20091007
  Transmission Date: 20110831
  Serious: No
  Sender: FDA-Public Use
  Company Number: US-PFIZER INC-2009280879

PATIENT
  Sex: Female
  Weight: 86.182 kg

DRUGS (3)
  1. NIFEDIPINE [Concomitant]
     Dates: end: 20091001
  2. LOPRESSOR [Concomitant]
     Dosage: 50 MG, 2X/DAY
     Route: 048
  3. AMLODIPINE BESYLATE [Suspect]
     Indication: HYPERTENSION
     Dosage: 5 MG, 1X/DAY
     Route: 048
     Dates: start: 20091001

REACTIONS (1)
  - GASTRIC DILATATION [None]
